FAERS Safety Report 5448415-7 (Version None)
Quarter: 2007Q3

REPORT INFORMATION
  Report Type: 
  Country: None (occurrence: None)
  Receive Date: 20070911
  Receipt Date: 20070828
  Transmission Date: 20080115
  Serious: Yes (Other)
  Sender: FDA-Public Use
  Company Number: PHBS2007IT14610

PATIENT
  Age: 54 Year
  Sex: Female

DRUGS (6)
  1. ZOMETA [Suspect]
     Indication: METASTASES TO BONE
     Dosage: 4 MG/EVERY 4 WKS
     Route: 042
  2. DOCETAXEL [Concomitant]
     Dosage: 75 MG, UNK
     Route: 042
  3. ADRIAMYCIN PFS [Concomitant]
     Dosage: 75 MG, UNK
  4. VINORELBINE [Concomitant]
  5. AROMASIN [Concomitant]
  6. XELODA [Concomitant]
     Dosage: 200 MG, UNK
     Route: 048

REACTIONS (3)
  - GINGIVAL INFECTION [None]
  - GINGIVAL OEDEMA [None]
  - OSTEONECROSIS [None]
